FAERS Safety Report 11868954 (Version 4)
Quarter: 2020Q1

REPORT INFORMATION
  Report Type: Spontaneous
  Country: ES (occurrence: ES)
  Receive Date: 20151225
  Receipt Date: 20200213
  Transmission Date: 20200409
  Serious: Yes (Hospitalization, Other)
  Sender: FDA-Public Use
  Company Number: ES-AUROBINDO-AUR-APL-2015-11665

PATIENT
  Age: 66 Year
  Sex: Female

DRUGS (1)
  1. CEFUROXIME. [Suspect]
     Active Substance: CEFUROXIME
     Indication: URINARY TRACT INFECTION
     Dosage: UNK
     Route: 065

REACTIONS (6)
  - Purpura [Recovered/Resolved]
  - Pustule [Recovered/Resolved]
  - Hypersensitivity vasculitis [Recovered/Resolved with Sequelae]
  - Papule [Recovered/Resolved]
  - Post inflammatory pigmentation change [Not Recovered/Not Resolved]
  - Skin lesion [Recovered/Resolved]
